FAERS Safety Report 9228006 (Version 1)
Quarter: 2013Q2

REPORT INFORMATION
  Report Type: Spontaneous
  Country: US (occurrence: US)
  Receive Date: 20130412
  Receipt Date: 20130412
  Transmission Date: 20140414
  Serious: No
  Sender: FDA-Public Use
  Company Number: US-BAYER-2013-046037

PATIENT
  Age: 69 Year
  Sex: Male
  Weight: 100 kg

DRUGS (2)
  1. ALEVE CAPLET [Suspect]
     Indication: ARTHRITIS
     Dosage: 3 DF, QD
     Route: 048
     Dates: start: 20130401, end: 20130404
  2. BLOOD PRESSURE MEDICATION (NOS) [Concomitant]

REACTIONS (1)
  - Drug ineffective [None]
